FAERS Safety Report 9728202 (Version 3)
Quarter: 2013Q4

REPORT INFORMATION
  Report Type: Spontaneous
  Country: US (occurrence: US)
  Receive Date: 20131204
  Receipt Date: 20131211
  Transmission Date: 20140711
  Serious: Yes (Other)
  Sender: FDA-Public Use
  Company Number: US-UCBSA-101769

PATIENT
  Age: 46 Year
  Sex: Female

DRUGS (14)
  1. CIMZIA [Suspect]
     Indication: CROHN^S DISEASE
     Dates: start: 20081020
  2. HYDROCORTISONE [Concomitant]
     Indication: HAEMORRHOIDS
     Dosage: 2.5% - AS NEEDED
     Route: 061
  3. LAMOTIL [Concomitant]
     Indication: DIARRHOEA
     Dosage: UNKNOWN
  4. NEXIUM [Concomitant]
     Indication: HIATUS HERNIA
  5. NEXIUM [Concomitant]
     Indication: GASTROOESOPHAGEAL REFLUX DISEASE
  6. PROPRANOLOL [Concomitant]
     Indication: HYPERTENSION
  7. TOPAMAX [Concomitant]
  8. NUVIGIL [Concomitant]
     Indication: SLEEP APNOEA SYNDROME
     Dosage: ONCE NIGFHTLY
  9. CLONODINE [Concomitant]
     Dosage: 0.2 MG NIGHTLY
  10. CITALOPRAM [Concomitant]
     Indication: DEPRESSION
     Dosage: ONE NIGHTLY
  11. CLONAZEPAM [Concomitant]
     Indication: BALANCE DISORDER
     Dosage: 1MG IN NIGHT
  12. CLONAZEPAM [Concomitant]
     Indication: DIZZINESS
     Dosage: 1MG IN NIGHT
  13. ANUCORT [Concomitant]
     Indication: HAEMORRHOIDS
     Dosage: 25MG DOSAGE STRENGTH - WHEN NEEDED
  14. NORCO [Concomitant]
     Dosage: AS NEEDED UP TO 4 A DAY- 10/325MG
     Dates: start: 201304

REACTIONS (19)
  - Convulsion [Unknown]
  - Nerve compression [Unknown]
  - Hydrocephalus [Unknown]
  - Blood pressure increased [Recovered/Resolved]
  - Dizziness [Unknown]
  - Haemorrhoids [Unknown]
  - Eye swelling [Unknown]
  - Loss of consciousness [Unknown]
  - Arthralgia [Unknown]
  - Back pain [Unknown]
  - Pain [Not Recovered/Not Resolved]
  - Urinary incontinence [Recovering/Resolving]
  - Arthralgia [Unknown]
  - Fall [Not Recovered/Not Resolved]
  - Eye allergy [Unknown]
  - Weight decreased [Unknown]
  - Irritable bowel syndrome [Unknown]
  - Sleep apnoea syndrome [Unknown]
  - Emotional disorder [Unknown]
